FAERS Safety Report 20762944 (Version 1)
Quarter: 2022Q2

REPORT INFORMATION
  Report Type: Spontaneous
  Country: FR (occurrence: FR)
  Receive Date: 20220428
  Receipt Date: 20220428
  Transmission Date: 20220721
  Serious: Yes (Life-Threatening, Other)
  Sender: FDA-Public Use
  Company Number: None

PATIENT
  Age: 15 Year
  Sex: Male

DRUGS (5)
  1. RISPERIDONE [Suspect]
     Active Substance: RISPERIDONE
     Indication: Behaviour disorder
     Dosage: 2 MILLIGRAM, QD
     Dates: start: 2018
  2. METHYLPHENIDATE [Suspect]
     Active Substance: METHYLPHENIDATE
     Indication: Behaviour disorder
     Dosage: 30 MILLIGRAM, QD
     Route: 048
     Dates: start: 20210922, end: 20220111
  3. METHYLPHENIDATE [Suspect]
     Active Substance: METHYLPHENIDATE
     Dosage: 20 MILLIGRAM, AM(DOSE OF 20 MG ML IN THE MORNING)
     Route: 048
     Dates: start: 20210922
  4. METHYLPHENIDATE [Suspect]
     Active Substance: METHYLPHENIDATE
     Dosage: 5 MILLIGRAM(ADDITION OF 5MG (IMMEDIATE RELEASE))
     Route: 048
     Dates: start: 20211004
  5. METHYLPHENIDATE [Suspect]
     Active Substance: METHYLPHENIDATE
     Dosage: 30 MILLIGRAM, QD(INCREASE IN DOSAGE FROM THE MODIFIED RELEASE FORM)
     Route: 048
     Dates: start: 20211220

REACTIONS (3)
  - Congestive cardiomyopathy [Not Recovered/Not Resolved]
  - Condition aggravated [Not Recovered/Not Resolved]
  - Cardiogenic shock [Recovered/Resolved]

NARRATIVE: CASE EVENT DATE: 20220111
